FAERS Safety Report 4293434-X (Version None)
Quarter: 2004Q1

REPORT INFORMATION
  Report Type: 
  Country: None (occurrence: None)
  Receive Date: 20040210
  Receipt Date: 20040210
  Transmission Date: 20041129
  Serious: Yes (Hospitalization)
  Sender: FDA-Public Use
  Company Number: None

PATIENT
  Age: 78 Year
  Sex: Male
  Weight: 89 kg

DRUGS (3)
  1. NAPROXEN [Suspect]
     Indication: BACK PAIN
     Dosage: 1 TAB PO BID
     Route: 048
     Dates: start: 20031017, end: 20031114
  2. OXYCODONE 5/APAP [Concomitant]
  3. DIAZEPAM [Concomitant]

REACTIONS (4)
  - DUODENAL ULCER [None]
  - GASTRITIS [None]
  - GASTROINTESTINAL HAEMORRHAGE [None]
  - HELICOBACTER INFECTION [None]
